FAERS Safety Report 17871310 (Version 3)
Quarter: 2020Q2

REPORT INFORMATION
  Report Type: Spontaneous
  Country: CA (occurrence: CA)
  Receive Date: 20200608
  Receipt Date: 20200617
  Transmission Date: 20200714
  Serious: Yes (Other)
  Sender: FDA-Public Use
  Company Number: CA-PFIZER INC-2017333982

PATIENT
  Age: 56 Year
  Sex: Male

DRUGS (7)
  1. METFORMIN [Concomitant]
     Active Substance: METFORMIN HYDROCHLORIDE
     Indication: DIABETES MELLITUS
     Dosage: UNK
     Route: 065
  2. FOLATE [Concomitant]
     Active Substance: FOLATE SODIUM
     Dosage: UNK 6D/WEEK
     Route: 065
  3. ATACAND [Concomitant]
     Active Substance: CANDESARTAN CILEXETIL
     Dosage: UNK
     Route: 065
  4. METHOTREXATE SODIUM. [Suspect]
     Active Substance: METHOTREXATE SODIUM
     Indication: RHEUMATOID ARTHRITIS
     Dosage: 25 MG, WEEKLY
     Route: 058
  5. METHOTREXATE SODIUM. [Suspect]
     Active Substance: METHOTREXATE SODIUM
     Dosage: 25 MG, UNK
     Route: 058
  6. PREDNISONE. [Concomitant]
     Active Substance: PREDNISONE
     Dosage: 5 MG, 2X/DAY
  7. PREDNISONE. [Concomitant]
     Active Substance: PREDNISONE
     Indication: RHEUMATOID ARTHRITIS
     Dosage: 10 MG, DAILY
     Route: 065

REACTIONS (32)
  - Hepatic steatosis [Unknown]
  - Condition aggravated [Unknown]
  - Weight decreased [Unknown]
  - Pneumonia [Not Recovered/Not Resolved]
  - Incorrect route of product administration [Unknown]
  - Decreased appetite [Unknown]
  - Weight increased [Unknown]
  - Bronchitis [Unknown]
  - Off label use [Unknown]
  - Eosinophil count increased [Unknown]
  - Dyspnoea [Recovering/Resolving]
  - White blood cell count increased [Unknown]
  - Neutrophil count increased [Unknown]
  - Bronchiectasis [Unknown]
  - Respiratory tract infection [Unknown]
  - Infection [Not Recovered/Not Resolved]
  - Disease recurrence [Not Recovered/Not Resolved]
  - Wheezing [Recovered/Resolved]
  - Anaemia [Unknown]
  - Sinusitis [Not Recovered/Not Resolved]
  - Intervertebral disc degeneration [Unknown]
  - Productive cough [Recovering/Resolving]
  - Oedema peripheral [Unknown]
  - Osteoarthritis [Unknown]
  - Monocyte count increased [Unknown]
  - Rheumatoid arthritis [Unknown]
  - Drug ineffective [Not Recovered/Not Resolved]
  - Vitamin B12 decreased [Unknown]
  - Chronic respiratory disease [Unknown]
  - Osteoporosis [Unknown]
  - Rhinorrhoea [Unknown]
  - Haemoglobin decreased [Unknown]

NARRATIVE: CASE EVENT DATE: 20150105
